FAERS Safety Report 9334060 (Version 1)
Quarter: 2013Q2

REPORT INFORMATION
  Report Type: Spontaneous
  Country: US (occurrence: US)
  Receive Date: 20130606
  Receipt Date: 20130606
  Transmission Date: 20140414
  Serious: No
  Sender: FDA-Public Use
  Company Number: US-AMGEN-USASP2013005024

PATIENT
  Age: 78 Year
  Sex: Female

DRUGS (8)
  1. PROLIA [Suspect]
     Indication: OSTEOPOROSIS POSTMENOPAUSAL
     Dosage: UNK
     Dates: start: 20121115
  2. VERAPAMIL [Concomitant]
     Dosage: 80 MG, BID
  3. LEVOXYL [Concomitant]
     Dosage: 25 MG, QD
  4. OMEPRAZOLE [Concomitant]
     Dosage: 20 MG, QD
  5. BABY ASPIRIN [Concomitant]
  6. CALCIUM WITH VITAMIN D             /00944201/ [Concomitant]
  7. VITAMINS                           /00067501/ [Concomitant]
  8. DULCOLAX                           /00064401/ [Concomitant]
     Dosage: UNK UNK, AS NECESSARY

REACTIONS (1)
  - Constipation [Unknown]
